FAERS Safety Report 17531497 (Version 2)
Quarter: 2020Q2

REPORT INFORMATION
  Report Type: Spontaneous
  Country: US (occurrence: US)
  Receive Date: 20200311
  Receipt Date: 20200629
  Transmission Date: 20200713
  Serious: No
  Sender: FDA-Public Use
  Company Number: US-SA-2020SA058172

PATIENT

DRUGS (15)
  1. SERTRALINE HCL [Concomitant]
     Active Substance: SERTRALINE HYDROCHLORIDE
  2. FLUOXETINE [Concomitant]
     Active Substance: FLUOXETINE HYDROCHLORIDE
  3. PERCOCET [Concomitant]
     Active Substance: ACETAMINOPHEN\OXYCODONE HYDROCHLORIDE
  4. HUMIRA [Concomitant]
     Active Substance: ADALIMUMAB
     Dosage: HUMIRA KIT 40 MG/0.8 ML
  5. MORPHINE SULFATE. [Concomitant]
     Active Substance: MORPHINE SULFATE
  6. IBUPROFEN. [Concomitant]
     Active Substance: IBUPROFEN
  7. PREDNISONE. [Concomitant]
     Active Substance: PREDNISONE
  8. OMEPRAZOLE. [Concomitant]
     Active Substance: OMEPRAZOLE
  9. METOPROLOL SUCCINATE. [Concomitant]
     Active Substance: METOPROLOL SUCCINATE
  10. LEFLUNOMIDE. [Concomitant]
     Active Substance: LEFLUNOMIDE
  11. METHOTREXATE. [Concomitant]
     Active Substance: METHOTREXATE
  12. KEVZARA [Suspect]
     Active Substance: SARILUMAB
     Indication: PRODUCT USED FOR UNKNOWN INDICATION
     Dosage: 200 MG, QOW
     Route: 058
  13. LISINOPRIL. [Concomitant]
     Active Substance: LISINOPRIL
  14. NABUMETONE. [Concomitant]
     Active Substance: NABUMETONE
  15. PROAIR HFA [Concomitant]
     Active Substance: ALBUTEROL SULFATE
     Dosage: AEROSOL

REACTIONS (2)
  - Product dose omission [Unknown]
  - Animal bite [Recovered/Resolved]
